FAERS Safety Report 15578368 (Version 1)
Quarter: 2018Q4

REPORT INFORMATION
  Report Type: Spontaneous
  Country: US (occurrence: US)
  Receive Date: 20181101
  Receipt Date: 20181101
  Transmission Date: 20190205
  Serious: Yes (Hospitalization)
  Sender: FDA-Public Use
  Company Number: None

PATIENT
  Sex: Male

DRUGS (16)
  1. METOLAZONE. [Concomitant]
     Active Substance: METOLAZONE
  2. CYPROHEPTAD [Concomitant]
  3. SUCRALFATE. [Concomitant]
     Active Substance: SUCRALFATE
  4. WARFARIN [Concomitant]
     Active Substance: WARFARIN
  5. ESCITALOPRAM [Concomitant]
     Active Substance: ESCITALOPRAM OXALATE
  6. TORSEMIDE. [Concomitant]
     Active Substance: TORSEMIDE
  7. ONDANSETRON [Concomitant]
     Active Substance: ONDANSETRON
  8. SILDENAFIL. [Suspect]
     Active Substance: SILDENAFIL
     Indication: COR PULMONALE
     Route: 048
     Dates: start: 20180210
  9. TRACLEER [Concomitant]
     Active Substance: BOSENTAN
  10. AMOX/K CLAV [Concomitant]
     Active Substance: AMOXICILLIN\CLAVULANATE POTASSIUM
  11. GABAPENTIN. [Concomitant]
     Active Substance: GABAPENTIN
  12. SPIRONOLACTONE. [Concomitant]
     Active Substance: SPIRONOLACTONE
  13. LORAZEPAM. [Concomitant]
     Active Substance: LORAZEPAM
  14. HYDROMORPHON [Concomitant]
     Active Substance: HYDROMORPHONE
  15. LACTULOSE. [Concomitant]
     Active Substance: LACTULOSE
  16. OXYCODONE [Concomitant]
     Active Substance: OXYCODONE

REACTIONS (1)
  - Abdominal pain [None]
